FAERS Safety Report 5710493-5 (Version None)
Quarter: 2008Q2

REPORT INFORMATION
  Report Type: 
  Country: None (occurrence: None)
  Receive Date: 20080414
  Receipt Date: 20080402
  Transmission Date: 20081010
  Serious: Yes (Other)
  Sender: FDA-Public Use
  Company Number: 2008SP006823

PATIENT
  Age: 23 Year
  Sex: Male

DRUGS (5)
  1. BETAMETHASONE SODIUM PHOSPHATE [Suspect]
     Indication: PEMPHIGUS
     Dosage: 30 G;QD; 20 MG;QD; 40 MG;QD; 25 MG;QD
     Dates: start: 20030901
  2. PREDNISOLONE [Suspect]
     Indication: PEMPHIGUS
     Dosage: 60 MG;QD;PO; 30 MG;QD
     Route: 048
     Dates: start: 20020502
  3. CYCLOSPORINE [Concomitant]
  4. METHYLPREDNISOLONE SODIUM SUCCINATE [Concomitant]
  5. MINOCYCLINE HYDROCHLORIDE [Concomitant]

REACTIONS (13)
  - BACTERIAL CULTURE POSITIVE [None]
  - BACTERIAL INFECTION [None]
  - BLISTER [None]
  - BLOOD LACTATE DEHYDROGENASE INCREASED [None]
  - FALL [None]
  - FUNGAL INFECTION [None]
  - IMMUNE SYSTEM DISORDER [None]
  - INJURY [None]
  - PURULENCE [None]
  - RASH [None]
  - SCRATCH [None]
  - SKIN DISORDER [None]
  - TRICHOPHYTIC GRANULOMA [None]
